FAERS Safety Report 19419816 (Version 1)
Quarter: 2021Q2

REPORT INFORMATION
  Report Type: Other
  Country: ES (occurrence: ES)
  Receive Date: 20210615
  Receipt Date: 20210615
  Transmission Date: 20210717
  Serious: Yes (Hospitalization)
  Sender: FDA-Public Use
  Company Number: ES-ROCHE-2843474

PATIENT

DRUGS (1)
  1. TOCILIZUMAB. [Suspect]
     Active Substance: TOCILIZUMAB
     Indication: COVID-19 PNEUMONIA
     Dosage: IN PATIENTS WEIGHING } 75 KG: A SINGLE DOSE OF 600 MG; AND IN PATIENTS {74KG: A SINGLE DOSE OF 400
     Route: 065

REACTIONS (9)
  - Tracheobronchitis [Unknown]
  - Pseudomonas infection [Unknown]
  - Escherichia infection [Unknown]
  - Aspergillus infection [Unknown]
  - Nosocomial infection [Unknown]
  - Staphylococcal infection [Unknown]
  - Candida infection [Unknown]
  - Off label use [Unknown]
  - Pneumonia [Unknown]
